FAERS Safety Report 13413614 (Version 2)
Quarter: 2017Q2

REPORT INFORMATION
  Report Type: Report from Study
  Country: GB (occurrence: GB)
  Receive Date: 20170407
  Receipt Date: 20170511
  Transmission Date: 20170830
  Serious: Yes (Hospitalization, Other)
  Sender: FDA-Public Use
  Company Number: GB-ALEXION PHARMACEUTICALS INC.-A201608973

PATIENT
  Age: 0 Year
  Sex: Female
  Weight: 6.36 kg

DRUGS (26)
  1. 1 % HYDROCORTISONE OINTMENT [Concomitant]
     Indication: PRODUCT USED FOR UNKNOWN INDICATION
     Dosage: APPLICATION ON LEFT SIDE OF BODY, UNK
     Route: 061
  2. ENB-0040 [Suspect]
     Active Substance: ASFOTASE ALFA
     Dosage: 37 MG, TIW
     Route: 058
  3. ENB-0040 [Suspect]
     Active Substance: ASFOTASE ALFA
     Dosage: 40 MG, TIW
     Route: 058
     Dates: start: 20161212
  4. COLOMYCIN                          /00013203/ [Concomitant]
     Active Substance: COLISTIN
     Indication: PRODUCT USED FOR UNKNOWN INDICATION
     Route: 065
  5. RANITIDINE. [Concomitant]
     Active Substance: RANITIDINE
     Indication: PRODUCT USED FOR UNKNOWN INDICATION
     Route: 065
  6. PARACETAMOL [Concomitant]
     Active Substance: ACETAMINOPHEN
     Indication: PRODUCT USED FOR UNKNOWN INDICATION
     Route: 065
  7. SPIRONOLACTONE. [Concomitant]
     Active Substance: SPIRONOLACTONE
     Indication: PRODUCT USED FOR UNKNOWN INDICATION
     Route: 065
  8. POTASSIUM CHLORIDE. [Concomitant]
     Active Substance: POTASSIUM CHLORIDE
     Indication: PRODUCT USED FOR UNKNOWN INDICATION
     Route: 065
  9. TAZOCIN [Concomitant]
     Active Substance: PIPERACILLIN SODIUM\TAZOBACTAM SODIUM
     Indication: PRODUCT USED FOR UNKNOWN INDICATION
     Route: 065
  10. LACTULOSE. [Concomitant]
     Active Substance: LACTULOSE
     Indication: PRODUCT USED FOR UNKNOWN INDICATION
     Route: 065
  11. ENB-0040 [Suspect]
     Active Substance: ASFOTASE ALFA
     Dosage: 28 MG, TIW
     Route: 058
     Dates: start: 20161123, end: 20161128
  12. CHLORAL HYDRATE [Concomitant]
     Active Substance: CHLORAL HYDRATE
     Indication: PRODUCT USED FOR UNKNOWN INDICATION
     Route: 065
  13. GENTAMICIN. [Concomitant]
     Active Substance: GENTAMICIN
     Indication: PRODUCT USED FOR UNKNOWN INDICATION
     Route: 065
  14. FOLIC ACID. [Concomitant]
     Active Substance: FOLIC ACID
     Indication: ANAEMIA PROPHYLAXIS
     Dosage: 500 ?G, QW
     Route: 048
  15. VITAMIN K [Concomitant]
     Active Substance: PHYTONADIONE
     Indication: PRODUCT USED FOR UNKNOWN INDICATION
     Route: 065
  16. DIPROBASE                          /01132701/ [Concomitant]
     Indication: PRODUCT USED FOR UNKNOWN INDICATION
     Dosage: LOCAL APPLICTION, QID
     Route: 061
  17. MEROPENEM. [Concomitant]
     Active Substance: MEROPENEM
     Indication: PRODUCT USED FOR UNKNOWN INDICATION
     Route: 065
  18. ORAMORPH [Concomitant]
     Active Substance: MORPHINE SULFATE
     Indication: PRODUCT USED FOR UNKNOWN INDICATION
     Route: 065
  19. HYDROMOL                           /00906601/ [Concomitant]
     Indication: PRODUCT USED FOR UNKNOWN INDICATION
     Dosage: LOCAL APPLICATION, QD
     Route: 061
  20. ENB-0040 [Suspect]
     Active Substance: ASFOTASE ALFA
     Indication: HYPOPHOSPHATASIA
     Dosage: 2MG/KG (7 MG)
     Route: 058
     Dates: start: 20160617
  21. FUROSEMIDE. [Concomitant]
     Active Substance: FUROSEMIDE
     Indication: PRODUCT USED FOR UNKNOWN INDICATION
     Route: 065
  22. ABIDEC [Concomitant]
     Indication: VITAMIN SUPPLEMENTATION
     Dosage: 0.6 ML, QD
     Route: 048
  23. PROTOPIC OINTMENT [Concomitant]
     Indication: PRODUCT USED FOR UNKNOWN INDICATION
     Dosage: APPLICATION ON RIGHT SIDE OF BODY, UNK
     Route: 061
  24. ENB-0040 [Suspect]
     Active Substance: ASFOTASE ALFA
     Dosage: 34 MG, TIW
     Route: 058
  25. SYTRON [Concomitant]
     Indication: ANAEMIA PROPHYLAXIS
     Dosage: 2.5 ML, BID
     Route: 048
  26. FLUCLOXACILLIN [Concomitant]
     Active Substance: FLUCLOXACILLIN
     Indication: PRODUCT USED FOR UNKNOWN INDICATION
     Route: 065

REACTIONS (8)
  - Hypercalcaemia [Recovered/Resolved]
  - Hypercalciuria [Not Recovered/Not Resolved]
  - Head circumference abnormal [Not Recovered/Not Resolved]
  - Poor quality drug administered [Unknown]
  - Nephrolithiasis [Not Recovered/Not Resolved]
  - Blood alkaline phosphatase increased [Not Recovered/Not Resolved]
  - Nephrocalcinosis [Not Recovered/Not Resolved]
  - Secretion discharge [Recovered/Resolved]

NARRATIVE: CASE EVENT DATE: 201606
